FAERS Safety Report 7184776-9 (Version None)
Quarter: 2010Q4

REPORT INFORMATION
  Report Type: 
  Country: None (occurrence: None)
  Receive Date: 20101222
  Receipt Date: 20101220
  Transmission Date: 20110411
  Serious: Yes (Other)
  Sender: FDA-Public Use
  Company Number: US-SP-2010-07082

PATIENT
  Sex: Male

DRUGS (2)
  1. TUBERSOL [Suspect]
     Indication: TUBERCULIN TEST
     Route: 023
     Dates: start: 20101219, end: 20101219
  2. DOXYCYCLINE [Concomitant]

REACTIONS (2)
  - DYSKINESIA [None]
  - POSTURE ABNORMAL [None]
